FAERS Safety Report 17355944 (Version 1)
Quarter: 2020Q1

REPORT INFORMATION
  Report Type: Spontaneous
  Country: US (occurrence: US)
  Receive Date: 20200131
  Receipt Date: 20200131
  Transmission Date: 20200409
  Serious: Yes (Other)
  Sender: FDA-Public Use
  Company Number: US-PFIZER INC-2020039300

PATIENT

DRUGS (1)
  1. MERREM [Suspect]
     Active Substance: MEROPENEM
     Indication: SEPSIS
     Dosage: 1 G, UNK (1 GRAM, GIVEN IN ARM)

REACTIONS (4)
  - Skin exfoliation [Unknown]
  - Injection site extravasation [Unknown]
  - Injection site vesicles [Unknown]
  - Injection site erythema [Unknown]

NARRATIVE: CASE EVENT DATE: 20200127
